FAERS Safety Report 25426494 (Version 4)
Quarter: 2025Q3

REPORT INFORMATION
  Report Type: Spontaneous
  Country: US (occurrence: US)
  Receive Date: 20250612
  Receipt Date: 20250916
  Transmission Date: 20251020
  Serious: No
  Sender: LUPIN
  Company Number: US-LUPIN PHARMACEUTICALS INC.-2025-04735

PATIENT
  Age: 65 Year
  Weight: 99.773 kg

DRUGS (6)
  1. ALBUTEROL SULFATE [Suspect]
     Active Substance: ALBUTEROL SULFATE
     Indication: Pneumothorax
     Dosage: 2 PUFFS BID (2 PUFFS IN THE MORNING AND SOMETIMES 2 PUFFS IN THE NIGHT))
  2. ALBUTEROL SULFATE [Suspect]
     Active Substance: ALBUTEROL SULFATE
     Indication: Dyspnoea
     Dosage: 2 PUFFS BID (2 PUFFS IN THE MORNING AND SOMETIMES 2 PUFFS IN THE NIGHT))
  3. ALBUTEROL SULFATE [Suspect]
     Active Substance: ALBUTEROL SULFATE
     Dosage: 2 PUFFS BID (2 PUFFS IN THE MORNING AND SOMETIMES 2 PUFFS IN THE NIGHT))
  4. ALBUTEROL SULFATE [Suspect]
     Active Substance: ALBUTEROL SULFATE
     Dosage: 2 PUFFS BID (2 PUFFS IN THE MORNING AND SOMETIMES 2 PUFFS IN THE NIGHT))
  5. ALBUTEROL SULFATE [Suspect]
     Active Substance: ALBUTEROL SULFATE
     Dosage: 2 PUFFS BID (2 PUFFS IN THE MORNING AND SOMETIMES 2 PUFFS IN THE NIGHT))
  6. ALBUTEROL SULFATE [Suspect]
     Active Substance: ALBUTEROL SULFATE

REACTIONS (2)
  - Wrong technique in product usage process [Unknown]
  - Off label use [Unknown]
